FAERS Safety Report 5369437-0 (Version None)
Quarter: 2007Q2

REPORT INFORMATION
  Report Type: 
  Country: None (occurrence: None)
  Receive Date: 20070625
  Receipt Date: 20070611
  Transmission Date: 20071010
  Serious: Yes (Other)
  Sender: FDA-Public Use
  Company Number: US-ELI_LILLY_AND_COMPANY-US200705007864

PATIENT
  Age: 48 Year
  Sex: Male

DRUGS (3)
  1. CIALIS [Suspect]
     Dosage: 20 MG, UNK
     Dates: start: 20060201
  2. CIALIS [Suspect]
     Dosage: 20 MG, UNK
     Dates: start: 20070501, end: 20070101
  3. CIALIS [Suspect]
     Dosage: 20 MG, UNK
     Dates: start: 20061205

REACTIONS (1)
  - SUPRAVENTRICULAR TACHYCARDIA [None]
